FAERS Safety Report 6516824-0 (Version None)
Quarter: 2009Q4

REPORT INFORMATION
  Report Type: 
  Country: None (occurrence: None)
  Receive Date: 20091223
  Receipt Date: 20091215
  Transmission Date: 20100525
  Serious: Yes (Hospitalization, Other)
  Sender: FDA-Public Use
  Company Number: PHHO2008US12892

PATIENT
  Sex: Male
  Weight: 90 kg

DRUGS (28)
  1. AFINITOR [Suspect]
     Indication: NON-SMALL CELL LUNG CANCER
     Dosage: 5 MG, QD
     Route: 048
     Dates: start: 20080929, end: 20081007
  2. AFINITOR [Suspect]
     Dosage: 5 MG, QD
     Route: 048
     Dates: start: 20081013
  3. TAXOTERE [Concomitant]
     Indication: NON-SMALL CELL LUNG CANCER
     Dosage: 75MG/M2
     Dates: start: 20080929
  4. VANCOMYCIN [Concomitant]
  5. MAGNESIUM SULFATE [Concomitant]
  6. POTASSIUM CHLORIDE [Concomitant]
  7. DIPHENHYDRAMINE HCL [Concomitant]
  8. TYLENOL (CAPLET) [Concomitant]
  9. MAXIPIME [Concomitant]
  10. ACETAMINOPHEN AND HYDROCODONE BITARTRATE [Concomitant]
  11. MAALOX [Concomitant]
  12. ACETYLSALICYLIC ACID [Concomitant]
  13. PLAVIX [Concomitant]
  14. LOVENOX [Concomitant]
  15. SYNTHROID [Concomitant]
  16. MILK OF MAGNESIA TAB [Concomitant]
  17. FLAGYL [Concomitant]
  18. PROMETHAZINE [Concomitant]
  19. AMBIEN [Concomitant]
  20. LORTAB [Concomitant]
  21. METOPROLOL TARTRATE [Concomitant]
  22. LEVOXYL [Concomitant]
  23. LISINOPRIL [Concomitant]
  24. PROCHLORPERAZINE [Concomitant]
  25. NYSTATIN [Concomitant]
  26. DECADRON [Concomitant]
  27. SORBITOL [Concomitant]
  28. SODIUM POLYSTYRENE SULFONATE [Concomitant]

REACTIONS (7)
  - CHILLS [None]
  - DIARRHOEA [None]
  - FEBRILE NEUTROPENIA [None]
  - HAEMATOCHEZIA [None]
  - INFLUENZA LIKE ILLNESS [None]
  - NEUTROPHIL COUNT DECREASED [None]
  - PYREXIA [None]
